FAERS Safety Report 12200588 (Version 2)
Quarter: 2016Q2

REPORT INFORMATION
  Report Type: Spontaneous
  Country: US (occurrence: US)
  Receive Date: 20160322
  Receipt Date: 20160427
  Transmission Date: 20160815
  Serious: No
  Sender: FDA-Public Use
  Company Number: US-009507513-1603USA009886

PATIENT
  Age: 47 Year
  Sex: Female

DRUGS (4)
  1. CUBICIN [Suspect]
     Active Substance: DAPTOMYCIN
     Dosage: 500 MG, UNK
     Route: 042
     Dates: start: 20150828, end: 20150906
  2. CUBICIN [Suspect]
     Active Substance: DAPTOMYCIN
     Dosage: 450 MG, UNK
     Route: 042
     Dates: start: 20151123, end: 20151217
  3. CUBICIN [Suspect]
     Active Substance: DAPTOMYCIN
     Dosage: 460 MG, UNK
     Route: 042
     Dates: start: 20160225, end: 20160307
  4. CUBICIN [Suspect]
     Active Substance: DAPTOMYCIN
     Dosage: 500 MG, UNK
     Route: 042
     Dates: start: 20151010, end: 20151020

REACTIONS (1)
  - Inappropriate schedule of drug administration [Unknown]

NARRATIVE: CASE EVENT DATE: 20151010
